FAERS Safety Report 8338954-3 (Version None)
Quarter: 2012Q2

REPORT INFORMATION
  Report Type: 
  Country: None (occurrence: None)
  Receive Date: 20120507
  Receipt Date: 20120426
  Transmission Date: 20120825
  Serious: Yes (Other)
  Sender: FDA-Public Use
  Company Number: GR-BRISTOL-MYERS SQUIBB COMPANY-16455651

PATIENT
  Age: 33 Year
  Sex: Female

DRUGS (2)
  1. ABILIFY [Suspect]
     Indication: PSYCHOTIC DISORDER
     Dosage: INITIATED WITH 5MG,INCREASED TO 10MG AND UPTO 30MG
     Route: 048
     Dates: start: 20120201, end: 20120314
  2. ABILIFY [Suspect]
     Indication: SCHIZOPHRENIA
     Dosage: INITIATED WITH 5MG,INCREASED TO 10MG AND UPTO 30MG
     Route: 048
     Dates: start: 20120201, end: 20120314

REACTIONS (2)
  - HAIR GROWTH ABNORMAL [None]
  - DELIRIUM [None]
